FAERS Safety Report 15621864 (Version 1)
Quarter: 2018Q4

REPORT INFORMATION
  Report Type: Spontaneous
  Country: ZA (occurrence: ZA)
  Receive Date: 20181115
  Receipt Date: 20181115
  Transmission Date: 20190205
  Serious: Yes (Other)
  Sender: FDA-Public Use
  Company Number: ZA-009507513-1811ZAF004856

PATIENT
  Sex: Male

DRUGS (1)
  1. EZETROL 10MG [Suspect]
     Active Substance: EZETIMIBE
     Dosage: SECOND TIME

REACTIONS (1)
  - Neuropathy peripheral [Not Recovered/Not Resolved]
